APPROVED DRUG PRODUCT: TICLOPIDINE HYDROCHLORIDE
Active Ingredient: TICLOPIDINE HYDROCHLORIDE
Strength: 250MG
Dosage Form/Route: TABLET;ORAL
Application: A075309 | Product #001
Applicant: WATSON LABORATORIES INC
Approved: Apr 26, 2000 | RLD: No | RS: No | Type: DISCN